FAERS Safety Report 20046439 (Version 2)
Quarter: 2022Q3

REPORT INFORMATION
  Report Type: Spontaneous
  Country: ES (occurrence: ES)
  Receive Date: 20211109
  Receipt Date: 20220922
  Transmission Date: 20221027
  Serious: Yes (Other)
  Sender: FDA-Public Use
  Company Number: ES-AEMPS-1034463

PATIENT
  Age: 77 Year
  Sex: Female

DRUGS (6)
  1. GEMCITABINE [Suspect]
     Active Substance: GEMCITABINE
     Indication: Pancreatic carcinoma
     Dosage: 1650 MILLIGRAM, WEEKLY, 1.CYCLE
     Route: 042
     Dates: start: 20200702, end: 20200716
  2. GEMCITABINE [Suspect]
     Active Substance: GEMCITABINE
     Dosage: 1650 MILLIGRAM, WEEKLY, 6.CYCLE
     Route: 042
     Dates: start: 20201201, end: 20201208
  3. BiResp Spiromax 160 microgramos / 4,5 microgramos polvo para inhala... [Concomitant]
     Indication: Product used for unknown indication
     Dosage: 1 DOSAGE FORM, BID
     Route: 055
     Dates: start: 20190416
  4. KREON 25.000 U capsulas duras gastrorresistentes, 100 capsulas [Concomitant]
     Indication: Product used for unknown indication
     Dosage: 75000 INTERNATIONAL UNIT, TID
     Route: 048
     Dates: start: 20200624
  5. CLEXANE 4.000 UI (40 mg)/ 0,4 ml  SOLUCION INYECTABLE EN JERINGA PR... [Concomitant]
     Indication: Product used for unknown indication
     Dosage: 40 MILLIGRAM, DAILY
     Route: 058
     Dates: start: 20200807
  6. XALATAN 50 microgramos/ml colirio en solucion , 1 frasco de 2,5 ml [Concomitant]
     Indication: Product used for unknown indication
     Dosage: 1 GTT DROPS, DAILY
     Route: 047
     Dates: start: 20190411

REACTIONS (2)
  - Oedema peripheral [Recovered/Resolved]
  - Cellulitis [Recovered/Resolved]

NARRATIVE: CASE EVENT DATE: 20201207
